FAERS Safety Report 21217650 (Version 1)
Quarter: 2022Q3

REPORT INFORMATION
  Report Type: Spontaneous
  Country: CN (occurrence: CN)
  Receive Date: 20220816
  Receipt Date: 20220816
  Transmission Date: 20221026
  Serious: Yes (Hospitalization, Other)
  Sender: FDA-Public Use
  Company Number: CN-ORGANON-O2208CHN000998

PATIENT
  Age: 30 Year
  Sex: Female
  Weight: 64 kg

DRUGS (18)
  1. FOLLITROPIN BETA [Suspect]
     Active Substance: FOLLITROPIN BETA
     Indication: Ovulation induction
     Dosage: 150IU, QD
     Route: 058
     Dates: start: 20220612, end: 20220615
  2. FOLLITROPIN BETA [Suspect]
     Active Substance: FOLLITROPIN BETA
     Indication: Polycystic ovaries
  3. FOLLITROPIN BETA [Suspect]
     Active Substance: FOLLITROPIN BETA
     Indication: Infertility female
  4. MENOTROPINS [Suspect]
     Active Substance: MENOTROPINS
     Indication: Polycystic ovaries
     Dosage: 150IU, QD
     Route: 030
     Dates: start: 20220619, end: 20220621
  5. MENOTROPINS [Suspect]
     Active Substance: MENOTROPINS
     Indication: Infertility female
     Dosage: 225IU, QD
     Route: 030
     Dates: start: 20220622, end: 20220624
  6. MENOTROPINS [Suspect]
     Active Substance: MENOTROPINS
     Indication: Ovulation induction
  7. FOLLITROPIN ALFA [Suspect]
     Active Substance: FOLLITROPIN ALFA
     Indication: Ovulation induction
     Dosage: 150IU, QD (RECOMBINANT HUMAN FOLLITROPIN ALFA)
     Route: 058
     Dates: start: 20220616, end: 20220618
  8. FOLLITROPIN ALFA [Suspect]
     Active Substance: FOLLITROPIN ALFA
     Indication: Polycystic ovaries
  9. FOLLITROPIN ALFA [Suspect]
     Active Substance: FOLLITROPIN ALFA
     Indication: Infertility female
  10. UROFOLLITROPIN [Suspect]
     Active Substance: UROFOLLITROPIN
     Indication: Ovulation induction
     Dosage: 150IU, QD
     Route: 058
     Dates: start: 20220619, end: 20220621
  11. UROFOLLITROPIN [Suspect]
     Active Substance: UROFOLLITROPIN
     Indication: Polycystic ovaries
     Dosage: 75IU, QD
     Route: 030
     Dates: start: 20220622, end: 20220623
  12. UROFOLLITROPIN [Suspect]
     Active Substance: UROFOLLITROPIN
     Indication: Infertility female
  13. LUTROPIN ALFA [Suspect]
     Active Substance: LUTROPIN ALFA
     Indication: Ovulation induction
     Dosage: 75IU, QD (RECOMBINANT HUMAN LUTROPIN ALFA)
     Route: 058
     Dates: start: 20220622, end: 20220624
  14. LUTROPIN ALFA [Suspect]
     Active Substance: LUTROPIN ALFA
     Indication: Polycystic ovaries
  15. LUTROPIN ALFA [Suspect]
     Active Substance: LUTROPIN ALFA
     Indication: Infertility female
  16. CHORIOGONADOTROPIN ALFA [Suspect]
     Active Substance: CHORIOGONADOTROPIN ALFA
     Indication: Ovulation induction
     Dosage: 75IU, QD
     Dates: start: 20220622, end: 20220624
  17. CHORIOGONADOTROPIN ALFA [Suspect]
     Active Substance: CHORIOGONADOTROPIN ALFA
     Indication: Polycystic ovaries
     Dosage: 250 UG, QD
     Route: 058
     Dates: start: 20220624
  18. CHORIOGONADOTROPIN ALFA [Suspect]
     Active Substance: CHORIOGONADOTROPIN ALFA
     Indication: Infertility female

REACTIONS (5)
  - Ovarian hyperstimulation syndrome [Unknown]
  - Chest discomfort [Recovering/Resolving]
  - Abdominal pain upper [Recovering/Resolving]
  - Abdominal distension [Recovering/Resolving]
  - Abdominal pain [Recovering/Resolving]

NARRATIVE: CASE EVENT DATE: 20220101
